FAERS Safety Report 7100388-7 (Version None)
Quarter: 2010Q4

REPORT INFORMATION
  Report Type: 
  Country: None (occurrence: None)
  Receive Date: 20101112
  Receipt Date: 20101102
  Transmission Date: 20110411
  Serious: Yes (Other)
  Sender: FDA-Public Use
  Company Number: PHHY2010KR74193

PATIENT
  Sex: Female

DRUGS (2)
  1. ACLASTA [Suspect]
     Indication: OSTEOPOROSIS
     Dosage: 5 MG
     Route: 042
     Dates: start: 20090410
  2. ACLASTA [Suspect]
     Dosage: 5 MG
     Dates: start: 20100402

REACTIONS (2)
  - FALL [None]
  - RIB FRACTURE [None]
